FAERS Safety Report 6285876-8 (Version None)
Quarter: 2009Q3

REPORT INFORMATION
  Report Type: 
  Country: None (occurrence: None)
  Receive Date: 20090724
  Receipt Date: 20090717
  Transmission Date: 20100115
  Serious: Yes (Death)
  Sender: FDA-Public Use
  Company Number: 2009-1551

PATIENT
  Age: 51 Year
  Sex: Male

DRUGS (1)
  1. LANREOTIDE AUTOGEL (LANREOTIDE) (LANREOTIDE ACETATE) [Suspect]
     Indication: CARCINOID SYNDROME
     Dosage: 120 MG, 1 IN 28 D
     Route: 058
     Dates: start: 20090308

REACTIONS (3)
  - LOSS OF CONSCIOUSNESS [None]
  - METASTATIC NEOPLASM [None]
  - TERMINAL STATE [None]
